FAERS Safety Report 16142396 (Version 3)
Quarter: 2019Q4

REPORT INFORMATION
  Report Type: Spontaneous
  Country: US (occurrence: US)
  Receive Date: 20190401
  Receipt Date: 20191223
  Transmission Date: 20200122
  Serious: No
  Sender: FDA-Public Use
  Company Number: US-SA-2019SA088789

PATIENT
  Age: 62 Year
  Sex: Female

DRUGS (9)
  1. VITAMIN E [Concomitant]
     Active Substance: .ALPHA.-TOCOPHEROL
  2. DUPILUMAB [Suspect]
     Active Substance: DUPILUMAB
     Indication: ECZEMA
     Dosage: 300 MG, QOW
     Route: 058
     Dates: start: 20190219
  3. VITAMIN B12 [COBAMAMIDE] [Concomitant]
  4. ESTRADIOL. [Concomitant]
     Active Substance: ESTRADIOL
  5. FLONASE [Concomitant]
     Active Substance: FLUTICASONE PROPIONATE
  6. DUPILUMAB [Suspect]
     Active Substance: DUPILUMAB
     Indication: DERMATITIS ATOPIC
     Dosage: 300 MG, QOW
     Route: 058
     Dates: start: 20190214, end: 2019
  7. LEVOTHYROXINE. [Concomitant]
     Active Substance: LEVOTHYROXINE
  8. FIBER [Concomitant]
     Active Substance: PSYLLIUM HUSK
  9. GEMFIBROZIL. [Concomitant]
     Active Substance: GEMFIBROZIL

REACTIONS (7)
  - Pruritus [Not Recovered/Not Resolved]
  - Eczema [Not Recovered/Not Resolved]
  - Emotional disorder [Not Recovered/Not Resolved]
  - Stress [Not Recovered/Not Resolved]
  - Rash [Not Recovered/Not Resolved]
  - Sinusitis [Not Recovered/Not Resolved]
  - Nonalcoholic fatty liver disease [Not Recovered/Not Resolved]

NARRATIVE: CASE EVENT DATE: 2019
